FAERS Safety Report 7007492-2 (Version None)
Quarter: 2010Q3

REPORT INFORMATION
  Report Type: 
  Country: None (occurrence: None)
  Receive Date: 20100920
  Receipt Date: 20100903
  Transmission Date: 20110219
  Serious: Yes (Other)
  Sender: FDA-Public Use
  Company Number: ACO_01748_2010

PATIENT
  Sex: Female

DRUGS (20)
  1. AMPYRA [Suspect]
     Indication: GAIT DISTURBANCE
     Dosage: 10 MG BID ORAL
     Route: 048
     Dates: start: 20100313, end: 20100613
  2. TYSABRI [Concomitant]
  3. TIZANIDINE HCL [Concomitant]
  4. LEVOTHYROXINE SODIUM [Concomitant]
  5. NABUMETONE [Concomitant]
  6. ALPLOZALDEN [Concomitant]
  7. HYDROXYCHLOROQUINE [Concomitant]
  8. MS CONTIN [Concomitant]
  9. MORPHINE SULFATE [Concomitant]
  10. NUVIGT [Concomitant]
  11. CALCIUM WITH VITAMINS D [Concomitant]
  12. AMLODIPINE [Concomitant]
  13. ACTOPLUS MET [Concomitant]
  14. TEMAZEPAM [Concomitant]
  15. SYNTHROID [Concomitant]
  16. GABAPENTIN [Concomitant]
  17. BACLOFEN [Concomitant]
  18. SIMVASTATIN [Concomitant]
  19. NEXIUM [Concomitant]
  20. MORPHINE SULFATE [Concomitant]

REACTIONS (4)
  - DYSPNOEA [None]
  - MULTIPLE SCLEROSIS RELAPSE [None]
  - OROPHARYNGEAL PAIN [None]
  - PHARYNGEAL OEDEMA [None]
